FAERS Safety Report 15403827 (Version 2)
Quarter: 2018Q4

REPORT INFORMATION
  Report Type: Spontaneous
  Country: SK (occurrence: SK)
  Receive Date: 20180919
  Receipt Date: 20181001
  Transmission Date: 20190204
  Serious: Yes (Other)
  Sender: FDA-Public Use
  Company Number: SK-MYLANLABS-2018M1068227

PATIENT
  Sex: Male

DRUGS (1)
  1. FLUCONAZOLE. [Suspect]
     Active Substance: FLUCONAZOLE
     Indication: ACUTE LYMPHOCYTIC LEUKAEMIA
     Dosage: UNK
     Route: 065

REACTIONS (5)
  - Oral herpes [Unknown]
  - Hypotension [Unknown]
  - Pancytopenia [Unknown]
  - Product use in unapproved indication [Unknown]
  - Hypothermia [Unknown]
